FAERS Safety Report 8908423 (Version 1)
Quarter: 2012Q4

REPORT INFORMATION
  Report Type: 
  Country: US (occurrence: US)
  Receive Date: 20121114
  Receipt Date: 20121114
  Transmission Date: 20130627
  Serious: No
  Sender: FDA-Public Use
  Company Number: US-PFIZER INC-2012284300

PATIENT
  Age: 62 Year
  Sex: Female
  Weight: 86.17 kg

DRUGS (6)
  1. GABAPENTIN [Suspect]
     Indication: BACK PAIN
     Dosage: 300mg oral capsule in the morning and two 300mg capsule at night
     Route: 048
     Dates: start: 201208
  2. GABAPENTIN [Suspect]
     Indication: PAIN IN HIP
  3. PROTONIX [Concomitant]
     Indication: ANTACID THERAPY
     Dosage: UNK
  4. EFFEXOR-XR [Concomitant]
     Indication: DEPRESSION
     Dosage: UNK
  5. CORTISONE [Concomitant]
     Indication: BACK PAIN
     Dosage: UNK
  6. ADVIL [Concomitant]
     Dosage: UNK, 2x/day

REACTIONS (1)
  - Somnolence [Recovered/Resolved]
